FAERS Safety Report 6090942-6 (Version None)
Quarter: 2009Q1

REPORT INFORMATION
  Report Type: 
  Country: None (occurrence: None)
  Receive Date: 20090224
  Receipt Date: 20070831
  Transmission Date: 20090719
  Serious: Yes (Other)
  Sender: FDA-Public Use
  Company Number: US-BAXTER-2008BH010389

PATIENT
  Sex: Female

DRUGS (12)
  1. GAMMAGARD LIQUID [Suspect]
     Indication: RHEUMATOID ARTHRITIS
     Route: 042
     Dates: start: 20070301
  2. GAMMAGARD LIQUID [Suspect]
     Indication: NEUROPATHY PERIPHERAL
     Route: 042
     Dates: start: 20070301
  3. GAMMAGARD LIQUID [Suspect]
     Indication: OFF LABEL USE
     Route: 042
     Dates: start: 20070301
  4. GAMMAGARD S/D [Suspect]
     Indication: RHEUMATOID ARTHRITIS
     Route: 042
  5. GAMMAGARD S/D [Suspect]
     Indication: NEUROPATHY PERIPHERAL
     Route: 042
  6. GAMMAGARD S/D [Suspect]
     Indication: OFF LABEL USE
     Route: 042
  7. ACETAMINOPHEN [Concomitant]
     Indication: PREMEDICATION
     Route: 065
  8. SOLU-MEDROL [Concomitant]
     Indication: PREMEDICATION
     Route: 042
  9. SINGULAIR [Concomitant]
     Indication: PREMEDICATION
     Route: 048
  10. PEPCID [Concomitant]
     Indication: PREMEDICATION
     Route: 042
  11. ZOFRAN [Concomitant]
     Indication: PREMEDICATION
     Route: 042
  12. ATARAX [Concomitant]
     Indication: PREMEDICATION
     Route: 042

REACTIONS (2)
  - ANAPHYLACTOID REACTION [None]
  - DRUG INTOLERANCE [None]
